FAERS Safety Report 7092893-7 (Version None)
Quarter: 2010Q4

REPORT INFORMATION
  Report Type: 
  Country: None (occurrence: None)
  Receive Date: 20101110
  Receipt Date: 20101104
  Transmission Date: 20110411
  Serious: No
  Sender: FDA-Public Use
  Company Number: US-PFIZER INC-2010140742

PATIENT
  Sex: Male
  Weight: 88.4 kg

DRUGS (1)
  1. CELEBREX [Suspect]
     Indication: NEURALGIA
     Dosage: 200 MG, 1X/DAY
     Route: 048
     Dates: start: 20101103

REACTIONS (2)
  - PRURITUS [None]
  - URTICARIA [None]
